FAERS Safety Report 14502634 (Version 2)
Quarter: 2018Q1

REPORT INFORMATION
  Report Type: Report from Study
  Country: US (occurrence: US)
  Receive Date: 20180208
  Receipt Date: 20180315
  Transmission Date: 20180509
  Serious: Yes (Life-Threatening, Other)
  Sender: FDA-Public Use
  Company Number: US-AMGEN-USASL2018015786

PATIENT
  Age: 56 Year
  Sex: Female

DRUGS (4)
  1. CIMZIA [Concomitant]
     Active Substance: CERTOLIZUMAB PEGOL
     Indication: PRODUCT USED FOR UNKNOWN INDICATION
     Dosage: UNK
     Route: 065
  2. ENBREL [Suspect]
     Active Substance: ETANERCEPT
     Dosage: UNK UNK, 2 TIMES/WK
     Route: 065
  3. ENBREL [Suspect]
     Active Substance: ETANERCEPT
     Indication: PSORIATIC ARTHROPATHY
     Dosage: UNK UNK, 2 TIMES/WK
     Route: 065
  4. ENBREL [Suspect]
     Active Substance: ETANERCEPT
     Dosage: UNK UNK, 2 TIMES/WK
     Route: 065

REACTIONS (7)
  - Drug ineffective [Unknown]
  - Psoriasis [Recovering/Resolving]
  - Unevaluable event [Unknown]
  - Arthralgia [Recovering/Resolving]
  - Sepsis [Unknown]
  - Abscess [Unknown]
  - Splenic neoplasm malignancy unspecified [Unknown]

NARRATIVE: CASE EVENT DATE: 2016
